FAERS Safety Report 6521508-9 (Version None)
Quarter: 2009Q4

REPORT INFORMATION
  Report Type: 
  Country: None (occurrence: None)
  Receive Date: 20091230
  Receipt Date: 20091221
  Transmission Date: 20100525
  Serious: Yes (Death, Hospitalization)
  Sender: FDA-Public Use
  Company Number: RU-BRISTOL-MYERS SQUIBB COMPANY-14773394

PATIENT
  Age: 61 Year
  Sex: Male

DRUGS (5)
  1. BLINDED: IPILIMUMAB [Suspect]
     Indication: LUNG NEOPLASM MALIGNANT
     Route: 042
     Dates: start: 20090720, end: 20090811
  2. TAXOL [Suspect]
     Indication: LUNG NEOPLASM MALIGNANT
     Route: 042
     Dates: start: 20090720, end: 20090811
  3. PARAPLATIN [Suspect]
     Indication: LUNG NEOPLASM MALIGNANT
     Dosage: 1 DF=AUC6
     Route: 042
     Dates: start: 20090720, end: 20090811
  4. BLINDED: PLACEBO [Suspect]
     Indication: LUNG NEOPLASM MALIGNANT
     Dates: start: 20090720, end: 20090811
  5. NORMAL SALINE [Concomitant]
     Dates: start: 20090901

REACTIONS (12)
  - ACUTE HEPATIC FAILURE [None]
  - BRAIN OEDEMA [None]
  - CARDIAC FAILURE [None]
  - GASTROINTESTINAL HAEMORRHAGE [None]
  - HEPATIC NECROSIS [None]
  - HEPATORENAL SYNDROME [None]
  - HEPATOTOXICITY [None]
  - MUCOSAL HAEMORRHAGE [None]
  - PLEURAL HAEMORRHAGE [None]
  - RENAL FAILURE ACUTE [None]
  - RENAL NECROSIS [None]
  - SKIN HAEMORRHAGE [None]
